FAERS Safety Report 7669987-8 (Version None)
Quarter: 2011Q3

REPORT INFORMATION
  Report Type: 
  Country: None (occurrence: None)
  Receive Date: 20110808
  Receipt Date: 20110803
  Transmission Date: 20111222
  Serious: Yes (Death, Hospitalization)
  Sender: FDA-Public Use
  Company Number: BE-ASTRAZENECA-2011SE46537

PATIENT
  Age: 51 Year
  Sex: Male

DRUGS (4)
  1. MEROPENEM [Suspect]
     Indication: SEPSIS
     Route: 042
  2. TIGECYCLINE [Concomitant]
     Indication: SEPSIS
  3. COLISTINEB [Interacting]
     Indication: ESCHERICHIA INFECTION
  4. VANCOMYCIN [Concomitant]
     Indication: SEPSIS

REACTIONS (7)
  - DRUG INTERACTION [None]
  - CARDIOVASCULAR DISORDER [None]
  - CIRCULATORY COLLAPSE [None]
  - FUNGAL SEPSIS [None]
  - CONVULSION [None]
  - RESPIRATORY FAILURE [None]
  - PNEUMONIA [None]
